FAERS Safety Report 25350249 (Version 1)
Quarter: 2025Q2

REPORT INFORMATION
  Report Type: Spontaneous
  Country: PT (occurrence: PT)
  Receive Date: 20250523
  Receipt Date: 20250523
  Transmission Date: 20250717
  Serious: Yes (Other)
  Sender: CELLTRION
  Company Number: PT-AMGEN-PRTSP2024224169

PATIENT

DRUGS (16)
  1. ADALIMUMAB [Suspect]
     Active Substance: ADALIMUMAB
     Indication: Juvenile idiopathic arthritis
     Dosage: 160 MILLIGRAM, Q2WK, LOADING DOSE
     Route: 065
     Dates: start: 202106
  2. ADALIMUMAB [Suspect]
     Active Substance: ADALIMUMAB
     Indication: Crohn^s disease
     Dosage: 40 MILLIGRAM, Q2WK
     Route: 065
     Dates: start: 202107
  3. ADALIMUMAB [Suspect]
     Active Substance: ADALIMUMAB
     Dosage: 80 MILLIGRAM, Q2WK
     Route: 065
  4. PREDNISOLONE [Concomitant]
     Active Substance: PREDNISOLONE
  5. PREDNISOLONE [Concomitant]
     Active Substance: PREDNISOLONE
  6. PREDNISOLONE [Concomitant]
     Active Substance: PREDNISOLONE
  7. PREDNISOLONE [Concomitant]
     Active Substance: PREDNISOLONE
  8. PREDNISOLONE [Concomitant]
     Active Substance: PREDNISOLONE
  9. CETIRIZINE [Concomitant]
     Active Substance: CETIRIZINE HYDROCHLORIDE
  10. IBUPROFEN [Concomitant]
     Active Substance: IBUPROFEN
  11. ETORICOXIB [Concomitant]
     Active Substance: ETORICOXIB
  12. CELECOXIB [Concomitant]
     Active Substance: CELECOXIB
  13. DICLOFENAC [Concomitant]
     Active Substance: DICLOFENAC
  14. MISOPROSTOL [Concomitant]
     Active Substance: MISOPROSTOL
  15. ACETAMINOPHEN [Concomitant]
     Active Substance: ACETAMINOPHEN
  16. METHOTREXATE [Concomitant]
     Active Substance: METHOTREXATE

REACTIONS (6)
  - Crohn^s disease [Recovered/Resolved]
  - Juvenile spondyloarthritis [Recovered/Resolved]
  - Juvenile idiopathic arthritis [Recovered/Resolved]
  - Sacroiliitis [Unknown]
  - Affect lability [Unknown]
  - Off label use [Unknown]
